FAERS Safety Report 8190561-1 (Version None)
Quarter: 2012Q1

REPORT INFORMATION
  Report Type: 
  Country: None (occurrence: None)
  Receive Date: 20120305
  Receipt Date: 20120223
  Transmission Date: 20120608
  Serious: Yes (Life-Threatening)
  Sender: FDA-Public Use
  Company Number: AUR-APL-2012-01156

PATIENT
  Age: 64 Year
  Sex: Male

DRUGS (6)
  1. ENALAPRIL MALEATE [Suspect]
     Indication: HYPERTENSION
     Dosage: (10 MG,1 D),ORAL
     Route: 048
     Dates: start: 20060201, end: 20110419
  2. SINTROM [Concomitant]
  3. METFORMIN HCL [Suspect]
     Indication: DIABETES MELLITUS
     Dosage: (2.6 GM,1 D),ORAL
     Route: 048
     Dates: start: 20080401, end: 20110419
  4. FUROSEMIDE [Suspect]
     Indication: HYPERTENSION
     Dosage: (40 MG,1 D),ORAL
     Route: 048
     Dates: start: 20060201, end: 20110419
  5. ALDACTONE [Suspect]
     Indication: HYPERTENSION
     Dosage: (100 MG,1 D),ORAL
     Route: 048
     Dates: start: 20060201, end: 20110419
  6. GLYBURIDE [Suspect]
     Indication: DIABETES MELLITUS
     Dosage: (15 MG,1 D),ORAL
     Route: 048
     Dates: start: 20060201, end: 20110419

REACTIONS (4)
  - HYPERKALAEMIA [None]
  - RENAL FAILURE ACUTE [None]
  - DRUG INTERACTION [None]
  - HYPOGLYCAEMIA [None]
